FAERS Safety Report 16358848 (Version 2)
Quarter: 2019Q3

REPORT INFORMATION
  Report Type: Report from Study
  Country: None (occurrence: BR)
  Receive Date: 20190527
  Receipt Date: 20190823
  Transmission Date: 20191004
  Serious: Yes (Hospitalization)
  Sender: FDA-Public Use
  Company Number: BR-ABBVIE-19K-020-2793726-00

PATIENT
  Sex: Male
  Weight: 40 kg

DRUGS (1)
  1. HUMIRA [Suspect]
     Active Substance: ADALIMUMAB
     Indication: ANKYLOSING SPONDYLITIS
     Route: 058
     Dates: start: 20181001

REACTIONS (3)
  - Pain in extremity [Recovering/Resolving]
  - Weight decreased [Recovering/Resolving]
  - Ankylosing spondylitis [Recovering/Resolving]
